FAERS Safety Report 11558467 (Version 3)
Quarter: 2015Q4

REPORT INFORMATION
  Report Type: Report from Study
  Country: DE (occurrence: DE)
  Receive Date: 20150928
  Receipt Date: 20151211
  Transmission Date: 20160304
  Serious: Yes (Hospitalization, Other)
  Sender: FDA-Public Use
  Company Number: DE-ACTELION-A-CH2015-124390

PATIENT
  Age: 50 Year
  Sex: Female
  Weight: 70 kg

DRUGS (6)
  1. ALDACTONE [Concomitant]
     Active Substance: SPIRONOLACTONE
  2. PROCORALAN [Concomitant]
     Active Substance: IVABRADINE
  3. REVATIO [Concomitant]
     Active Substance: SILDENAFIL CITRATE
  4. TOREM [Concomitant]
     Active Substance: TORSEMIDE
  5. PANTOPRAZOL [Concomitant]
     Active Substance: PANTOPRAZOLE SODIUM
  6. MACITENTAN [Suspect]
     Active Substance: MACITENTAN
     Indication: INVESTIGATION
     Dosage: UNK, QD
     Route: 048
     Dates: start: 20150814, end: 20150918

REACTIONS (7)
  - Fibrin D dimer increased [Unknown]
  - Chlamydial infection [Unknown]
  - Sinoatrial block [Unknown]
  - Mycoplasma infection [Unknown]
  - Dyspnoea [Recovered/Resolved]
  - Alveolitis [Recovered/Resolved]
  - Poisoning [Unknown]

NARRATIVE: CASE EVENT DATE: 20150918
